FAERS Safety Report 10267744 (Version 1)
Quarter: 2014Q2

REPORT INFORMATION
  Report Type: Spontaneous
  Country: FR (occurrence: FR)
  Receive Date: 20140630
  Receipt Date: 20140630
  Transmission Date: 20141212
  Serious: Yes (Hospitalization)
  Sender: FDA-Public Use
  Company Number: FR-SA-2014SA081669

PATIENT
  Age: 79 Year
  Sex: Female

DRUGS (8)
  1. LOVENOX [Suspect]
     Indication: PRODUCT USED FOR UNKNOWN INDICATION
     Route: 065
     Dates: start: 20131028, end: 20131106
  2. COUMADINE [Suspect]
     Indication: PRODUCT USED FOR UNKNOWN INDICATION
     Route: 065
     Dates: start: 20131029, end: 20131106
  3. DIAMOX [Concomitant]
  4. LANTUS [Concomitant]
     Dosage: DOSAGE: 6UI DAILY
  5. PERINDOPRIL [Concomitant]
  6. NEO MERCAZOLE [Concomitant]
  7. TARDYFERON /GFR/ [Concomitant]
  8. OXYGEN [Concomitant]
     Dosage: DOSAGE: 1 LITRE PER MINUTE

REACTIONS (19)
  - Renal failure acute [Recovering/Resolving]
  - Cardiac failure [Recovering/Resolving]
  - Tachycardia [Recovering/Resolving]
  - Blood pressure decreased [Recovering/Resolving]
  - Decreased appetite [Unknown]
  - Atrial fibrillation [Unknown]
  - Arrhythmia [Unknown]
  - Cardiac murmur [Unknown]
  - Gastrointestinal ulcer [Unknown]
  - Oedema peripheral [Unknown]
  - Dyspnoea [Unknown]
  - Hyperthyroidism [Unknown]
  - Gastrointestinal haemorrhage [Recovering/Resolving]
  - Melaena [Recovering/Resolving]
  - Anaemia [Recovering/Resolving]
  - Asthenia [Recovering/Resolving]
  - Pallor [Recovering/Resolving]
  - Haemoglobin decreased [Recovering/Resolving]
  - Haematemesis [Unknown]
